FAERS Safety Report 7205929-7 (Version None)
Quarter: 2011Q1

REPORT INFORMATION
  Report Type: 
  Country: None (occurrence: None)
  Receive Date: 20110103
  Receipt Date: 20101228
  Transmission Date: 20110831
  Serious: Yes (Other)
  Sender: FDA-Public Use
  Company Number: FR-BIOGENIDEC-2010BI026681

PATIENT
  Age: 44 Year
  Sex: Female

DRUGS (8)
  1. COPAXONE [Concomitant]
     Indication: RELAPSING-REMITTING MULTIPLE SCLEROSIS
     Dates: start: 20100228, end: 20100630
  2. GUTRON [Concomitant]
  3. TARDYFERON [Concomitant]
  4. TYSABRI [Suspect]
     Indication: RELAPSING-REMITTING MULTIPLE SCLEROSIS
     Route: 042
     Dates: start: 20080313, end: 20100121
  5. HYPNOTIC [Concomitant]
  6. MANTADIX [Concomitant]
  7. TYSABRI [Suspect]
     Route: 042
     Dates: start: 20100805
  8. ANTIDEPRESSANT [Concomitant]

REACTIONS (2)
  - MULTIPLE SCLEROSIS RELAPSE [None]
  - REBOUND EFFECT [None]
